FAERS Safety Report 21001595 (Version 1)
Quarter: 2022Q2

REPORT INFORMATION
  Report Type: Spontaneous
  Country: US (occurrence: US)
  Receive Date: 20220624
  Receipt Date: 20220624
  Transmission Date: 20220720
  Serious: No
  Sender: FDA-Public Use
  Company Number: US-BioHaven Pharmaceuticals-2022BHV001046

PATIENT
  Sex: Female

DRUGS (3)
  1. NURTEC ODT [Suspect]
     Active Substance: RIMEGEPANT SULFATE
     Indication: Migraine
     Dosage: I^VE BEEN TAKING NURTEC OFF AND ON FOR SEVERAL YEARS/ 1 TABLET?TABLET MARKING: SOME OF THEM WERE CRA
     Route: 065
  2. ATIVAN [Concomitant]
     Active Substance: LORAZEPAM
     Indication: Product used for unknown indication
     Route: 065
  3. LORAZEPAM [Concomitant]
     Active Substance: LORAZEPAM
     Indication: Product used for unknown indication
     Route: 065

REACTIONS (5)
  - Dysgeusia [Unknown]
  - Migraine [Unknown]
  - Product after taste [Unknown]
  - Product physical issue [Unknown]
  - Abdominal pain upper [Unknown]
